FAERS Safety Report 11065109 (Version 2)
Quarter: 2015Q2

REPORT INFORMATION
  Report Type: Spontaneous
  Country: US (occurrence: US)
  Receive Date: 20150424
  Receipt Date: 20150525
  Transmission Date: 20150821
  Serious: Yes (Other)
  Sender: FDA-Public Use
  Company Number: US-JNJFOC-20150405229

PATIENT
  Sex: Male
  Weight: 76.2 kg

DRUGS (3)
  1. TOPAMAX [Suspect]
     Active Substance: TOPIRAMATE
     Indication: NEUROPATHY PERIPHERAL
     Route: 048
     Dates: start: 2005, end: 201501
  2. TOPAMAX [Suspect]
     Active Substance: TOPIRAMATE
     Indication: NEUROPATHY PERIPHERAL
     Route: 048
     Dates: start: 201501
  3. METFORMIN [Concomitant]
     Active Substance: METFORMIN HYDROCHLORIDE
     Indication: GLUCOSE TOLERANCE IMPAIRED
     Route: 048
     Dates: start: 2001

REACTIONS (3)
  - Thrombocytopenia [Not Recovered/Not Resolved]
  - Neuropathy peripheral [Unknown]
  - Product use issue [Unknown]

NARRATIVE: CASE EVENT DATE: 2005
